FAERS Safety Report 6557584-7 (Version None)
Quarter: 2010Q1

REPORT INFORMATION
  Report Type: 
  Country: None (occurrence: None)
  Receive Date: 20100126
  Receipt Date: 20090420
  Transmission Date: 20100710
  Serious: Yes (Other)
  Sender: FDA-Public Use
  Company Number: ACO_00545_2009

PATIENT
  Age: 50 Year
  Sex: Female

DRUGS (2)
  1. ZANAFLEX [Suspect]
     Indication: INSOMNIA
     Dosage: (7 DF QD), (5 DF QD)
  2. AMBIEN CR [Concomitant]

REACTIONS (3)
  - CONDITION AGGRAVATED [None]
  - OFF LABEL USE [None]
  - PARALYSIS [None]
